FAERS Safety Report 4853987-7 (Version None)
Quarter: 2005Q4

REPORT INFORMATION
  Report Type: 
  Country: None (occurrence: None)
  Receive Date: 20051213
  Receipt Date: 20051207
  Transmission Date: 20060501
  Serious: Yes (Hospitalization)
  Sender: FDA-Public Use
  Company Number: 2005BI019857

PATIENT
  Age: 39 Year
  Sex: Female
  Weight: 73.6 kg

DRUGS (4)
  1. AVONEX [Suspect]
     Indication: MULTIPLE SCLEROSIS
     Dosage: 300 UG; QW; IM
     Route: 030
     Dates: start: 20050928, end: 20050928
  2. AVONEX [Suspect]
     Indication: MULTIPLE SCLEROSIS
     Dosage: 15 UG; QW; IM
     Route: 030
     Dates: start: 20051031
  3. NEURONTIN [Concomitant]
  4. XANAX [Concomitant]

REACTIONS (7)
  - ANXIETY [None]
  - FATIGUE [None]
  - HYPOAESTHESIA [None]
  - INFLUENZA LIKE ILLNESS [None]
  - NEURALGIA [None]
  - PARAESTHESIA [None]
  - PULMONARY EMBOLISM [None]
